FAERS Safety Report 8333925-5 (Version None)
Quarter: 2012Q2

REPORT INFORMATION
  Report Type: 
  Country: None (occurrence: None)
  Receive Date: 20120503
  Receipt Date: 20110124
  Transmission Date: 20120825
  Serious: No
  Sender: FDA-Public Use
  Company Number: US-TEVA-2011000393

PATIENT
  Sex: Male
  Weight: 33.142 kg

DRUGS (3)
  1. INTUNIV [Concomitant]
     Dates: start: 20100101
  2. SYNTHROID [Concomitant]
     Dates: start: 20100910
  3. NUVIGIL [Suspect]
     Indication: ATTENTION DEFICIT/HYPERACTIVITY DISORDER
     Dosage: 300 MILLIGRAM;
     Route: 048
     Dates: start: 20101014, end: 20110120

REACTIONS (4)
  - NAUSEA [None]
  - VOMITING [None]
  - DRUG PRESCRIBING ERROR [None]
  - WITHDRAWAL SYNDROME [None]
